FAERS Safety Report 5742597-5 (Version None)
Quarter: 2008Q2

REPORT INFORMATION
  Report Type: 
  Country: None (occurrence: None)
  Receive Date: 20080515
  Receipt Date: 20080515
  Transmission Date: 20081010
  Serious: Yes (Hospitalization)
  Sender: FDA-Public Use
  Company Number: None

PATIENT
  Age: 41 Year
  Sex: Female
  Weight: 85.7298 kg

DRUGS (1)
  1. CYMBALTA [Suspect]
     Indication: NEURALGIA
     Dosage: 30 MG CAPSULE  1 CAPUSLE A DAY ORAL
     Route: 048
     Dates: start: 20080412, end: 20080415

REACTIONS (1)
  - WITHDRAWAL SYNDROME [None]
